FAERS Safety Report 5104787-4 (Version None)
Quarter: 2006Q3

REPORT INFORMATION
  Report Type: 
  Country: None (occurrence: None)
  Receive Date: 20060914
  Receipt Date: 20060414
  Transmission Date: 20061208
  Serious: Yes (Disabling)
  Sender: FDA-Public Use
  Company Number: US-ROCHE-444333

PATIENT
  Age: 56 Year
  Sex: Female

DRUGS (17)
  1. XELODA [Suspect]
     Indication: DRUG USE FOR UNKNOWN INDICATION
     Dosage: XELODA WAS HELD FOR THREE WEEKS FOR INCREASED BLOOD PRESSURE, HAND AND FOOT SYNDROME AND RASH.
     Route: 048
  2. XELODA [Suspect]
     Dosage: XELODA RESUMED AFTER THREE WEEK BREAK.
     Route: 048
  3. SORAFENIB [Suspect]
     Route: 048
     Dates: start: 20060127
  4. CLONIDINE [Concomitant]
     Route: 048
  5. ZOLOFT [Concomitant]
     Route: 048
  6. XANAX [Concomitant]
     Route: 048
  7. FENTANYL [Concomitant]
     Route: 062
  8. NORVASC [Concomitant]
     Route: 048
  9. PERCOCET [Concomitant]
     Route: 048
  10. K+ [Concomitant]
     Route: 048
  11. FERROUS SULFATE TAB [Concomitant]
     Route: 048
  12. COLACE [Concomitant]
     Route: 048
  13. PREDNISONE TAB [Concomitant]
     Indication: SARCOIDOSIS
     Route: 048
  14. LISINOPRIL [Concomitant]
     Route: 048
  15. MULTI-VITAMIN [Concomitant]
     Route: 048
  16. LASIX [Concomitant]
     Dosage: PRN
     Route: 048
  17. SKELAXIN [Concomitant]

REACTIONS (8)
  - BLOOD PRESSURE INCREASED [None]
  - ERYTHEMA [None]
  - LACRIMATION INCREASED [None]
  - PAIN IN EXTREMITY [None]
  - PALMAR-PLANTAR ERYTHRODYSAESTHESIA SYNDROME [None]
  - PARAESTHESIA [None]
  - RASH [None]
  - SARCOIDOSIS [None]
